FAERS Safety Report 10359817 (Version 1)
Quarter: 2014Q3

REPORT INFORMATION
  Report Type: Spontaneous
  Country: FR (occurrence: FR)
  Receive Date: 20140804
  Receipt Date: 20140804
  Transmission Date: 20150326
  Serious: Yes (Death)
  Sender: FDA-Public Use
  Company Number: PHHY2014FR091182

PATIENT
  Age: 44 Year
  Sex: Female

DRUGS (9)
  1. NEORAL [Interacting]
     Active Substance: CYCLOSPORINE
     Dosage: UNK
     Route: 048
     Dates: start: 20140622
  2. NOXAFIL [Interacting]
     Active Substance: POSACONAZOLE
     Indication: PROPHYLAXIS
     Dosage: 200 MG, TID
     Route: 048
     Dates: start: 20140616
  3. NEORAL [Interacting]
     Active Substance: CYCLOSPORINE
     Dosage: 80 MG, UNK
     Route: 048
     Dates: start: 20140623
  4. CORTANCYL [Concomitant]
     Active Substance: PREDNISONE
     Dosage: 7.5 MG, QD
  5. ATARAX [Concomitant]
     Active Substance: HYDROXYZINE\HYDROXYZINE HYDROCHLORIDE
     Dosage: UNK UKN, UNK
  6. DIFFU K [Concomitant]
     Active Substance: POTASSIUM CHLORIDE
     Dosage: UNK UKN, UNK
  7. NEORAL [Suspect]
     Active Substance: CYCLOSPORINE
     Indication: AGRANULOCYTOSIS
     Dosage: 120 MG, BID
     Route: 048
     Dates: start: 20140620
  8. URSOLVAN [Concomitant]
     Active Substance: URSODIOL
     Dosage: UNK UKN, UNK
  9. LEVOTHYROX [Concomitant]
     Active Substance: LEVOTHYROXINE
     Dosage: UNK UKN, UNK

REACTIONS (3)
  - Overdose [Fatal]
  - Multi-organ failure [Fatal]
  - Drug interaction [Unknown]

NARRATIVE: CASE EVENT DATE: 20140622
